FAERS Safety Report 5880681-6 (Version None)
Quarter: 2008Q3

REPORT INFORMATION
  Report Type: 
  Country: None (occurrence: None)
  Receive Date: 20080911
  Receipt Date: 20080902
  Transmission Date: 20090109
  Serious: Yes (Other)
  Sender: FDA-Public Use
  Company Number: SPV1-2008-01870

PATIENT
  Sex: Male

DRUGS (1)
  1. MEZAVANT(MESALAZINE,MESALAMINE) TABLET [Suspect]
     Indication: COLITIS
     Dosage: ORAL
     Route: 048

REACTIONS (4)
  - DIARRHOEA [None]
  - HYPOKINESIA [None]
  - OFF LABEL USE [None]
  - VOMITING [None]
